FAERS Safety Report 15180406 (Version 6)
Quarter: 2020Q2

REPORT INFORMATION
  Report Type: Spontaneous
  Country: DE (occurrence: DE)
  Receive Date: 20180723
  Receipt Date: 20200429
  Transmission Date: 20200713
  Serious: Yes (Hospitalization, Other)
  Sender: FDA-Public Use
  Company Number: DE-DRREDDYS-GER/GER/18/0102282

PATIENT
  Age: 75 Year
  Sex: Male
  Weight: 81 kg

DRUGS (25)
  1. PROLIA [Suspect]
     Active Substance: DENOSUMAB
     Indication: OSTEOPOROSIS
     Dosage: 60 MG, QMO
     Route: 058
     Dates: start: 201405
  2. ROACTEMRA [Suspect]
     Active Substance: TOCILIZUMAB
     Dosage: 162 MG, BID
     Route: 058
     Dates: start: 20180131
  3. ROACTEMRA [Suspect]
     Active Substance: TOCILIZUMAB
     Route: 058
     Dates: start: 20190227, end: 20190327
  4. ROACTEMRA [Suspect]
     Active Substance: TOCILIZUMAB
     Dosage: 162 MG
     Route: 058
     Dates: start: 201904
  5. FRAXIPARINE [Suspect]
     Active Substance: NADROPARIN CALCIUM
     Indication: VENOUS THROMBOSIS LIMB
     Dosage: UNK
     Dates: start: 201507
  6. CORTISONE ACETATE. [Concomitant]
     Active Substance: CORTISONE ACETATE
     Indication: PRODUCT USED FOR UNKNOWN INDICATION
     Dosage: UNK
  7. ESCITALOPRAM [Concomitant]
     Active Substance: ESCITALOPRAM OXALATE
     Indication: PRODUCT USED FOR UNKNOWN INDICATION
  8. PANTOPRAZOLE [Concomitant]
     Active Substance: PANTOPRAZOLE
     Indication: PRODUCT USED FOR UNKNOWN INDICATION
  9. AMLODIPIN [Concomitant]
     Active Substance: AMLODIPINE BESYLATE
     Route: 065
  10. CLEXANE [Suspect]
     Active Substance: ENOXAPARIN SODIUM
     Indication: VENOUS THROMBOSIS LIMB
     Dosage: UNK
     Dates: start: 201507
  11. ESCITALOPRAM [Concomitant]
     Active Substance: ESCITALOPRAM OXALATE
     Route: 048
  12. QUETIAPINE. [Suspect]
     Active Substance: QUETIAPINE
     Indication: PRODUCT USED FOR UNKNOWN INDICATION
     Dosage: 25 MG, QD
     Route: 065
  13. ROACTEMRA [Suspect]
     Active Substance: TOCILIZUMAB
     Indication: VASCULITIS
     Dosage: 162 MG, BID
     Route: 058
  14. ROACTEMRA [Suspect]
     Active Substance: TOCILIZUMAB
     Route: 058
     Dates: start: 201811
  15. AMLODIPIN [Concomitant]
     Active Substance: AMLODIPINE BESYLATE
     Indication: PRODUCT USED FOR UNKNOWN INDICATION
     Route: 065
  16. ROACTEMRA [Suspect]
     Active Substance: TOCILIZUMAB
     Indication: RHEUMATOID ARTHRITIS
     Dosage: 162 MG, BID
     Route: 058
     Dates: start: 20150706, end: 20171025
  17. ROACTEMRA [Suspect]
     Active Substance: TOCILIZUMAB
     Dosage: 162 MG, UNK, EVERY 14 DAYS
     Route: 058
  18. ROACTEMRA [Suspect]
     Active Substance: TOCILIZUMAB
     Indication: TEMPORAL ARTERITIS
     Dosage: 162 MG, UNK,EVERY 14 DAYS
     Route: 058
     Dates: start: 201704, end: 20171025
  19. COLECALCIFEROL [Suspect]
     Active Substance: CHOLECALCIFEROL
     Indication: OSTEOPOROSIS
     Dosage: UNK
     Route: 048
     Dates: start: 201204
  20. ESCITALOPRAM [Concomitant]
     Active Substance: ESCITALOPRAM OXALATE
     Route: 048
  21. ROACTEMRA [Suspect]
     Active Substance: TOCILIZUMAB
     Dosage: 162 MG, UNK, EVERY 10 DAYS
     Route: 058
     Dates: start: 20180414
  22. ROACTEMRA [Suspect]
     Active Substance: TOCILIZUMAB
     Dosage: 324 ONCE A DAY
     Route: 058
     Dates: start: 20140601, end: 201506
  23. ROACTEMRA [Suspect]
     Active Substance: TOCILIZUMAB
     Indication: MYALGIA
     Dosage: 162 MG, UNK, EVERY 12 DAYS
     Route: 058
  24. FRAXIPARINE [Suspect]
     Active Substance: NADROPARIN CALCIUM
     Dosage: UNK
  25. LISIHEXAL [Concomitant]
     Active Substance: LISINOPRIL
     Indication: PRODUCT USED FOR UNKNOWN INDICATION
     Dosage: UNK
     Route: 065

REACTIONS (27)
  - Lymphoedema [Recovered/Resolved]
  - Hyperaesthesia [Unknown]
  - Depression [Not Recovered/Not Resolved]
  - Eye inflammation [Recovering/Resolving]
  - Leukopenia [Recovered/Resolved]
  - Soft tissue disorder [Recovered/Resolved]
  - Fall [Unknown]
  - Inappropriate schedule of product administration [Unknown]
  - Off label use [Unknown]
  - Sepsis [Recovering/Resolving]
  - Autoimmune disorder [Unknown]
  - Erysipelas [Recovering/Resolving]
  - Dysuria [Unknown]
  - Bronchitis [Recovered/Resolved]
  - Angioedema [Recovered/Resolved]
  - Suture rupture [Recovered/Resolved]
  - Wound dehiscence [Recovered/Resolved]
  - Acetabulum fracture [Recovering/Resolving]
  - C-reactive protein increased [Recovering/Resolving]
  - Sleep disorder [Unknown]
  - Impaired healing [Recovered/Resolved]
  - Prostate cancer [Recovered/Resolved]
  - Rash erythematous [Unknown]
  - Venous thrombosis limb [Not Recovered/Not Resolved]
  - Product use in unapproved indication [Unknown]
  - Lymphocele [Recovered/Resolved]
  - Platelet count decreased [Unknown]

NARRATIVE: CASE EVENT DATE: 201407
